FAERS Safety Report 8109914-2 (Version None)
Quarter: 2012Q1

REPORT INFORMATION
  Report Type: 
  Country: None (occurrence: None)
  Receive Date: 20120202
  Receipt Date: 20120121
  Transmission Date: 20120608
  Serious: No
  Sender: FDA-Public Use
  Company Number: US-AMGEN-USASP2012004397

PATIENT
  Age: 50 Year
  Sex: Female

DRUGS (1)
  1. ENBREL [Suspect]
     Indication: ANKYLOSING SPONDYLITIS
     Dosage: UNK
     Dates: start: 20110801, end: 20110901

REACTIONS (5)
  - MALAISE [None]
  - CHILLS [None]
  - FATIGUE [None]
  - PYREXIA [None]
  - WEIGHT DECREASED [None]
